FAERS Safety Report 7179574-6 (Version None)
Quarter: 2010Q4

REPORT INFORMATION
  Report Type: 
  Country: None (occurrence: None)
  Receive Date: 20101221
  Receipt Date: 20101208
  Transmission Date: 20110411
  Serious: Yes (Hospitalization, Other)
  Sender: FDA-Public Use
  Company Number: PHHY2009GB45531

PATIENT
  Sex: Male

DRUGS (4)
  1. CLOZARIL [Suspect]
     Indication: SCHIZOPHRENIA
     Dosage: UNK
     Dates: start: 19951117, end: 20091019
  2. CLOZARIL [Suspect]
     Route: 048
     Dates: start: 20100304, end: 20101108
  3. VALPROATE SODIUM [Suspect]
     Dosage: UNK
     Dates: start: 20090720, end: 20091102
  4. GRANULOCYTE COLONY STIMULATING FACTOR [Concomitant]

REACTIONS (15)
  - ALCOHOL ABUSE [None]
  - BLOOD CREATINE PHOSPHOKINASE INCREASED [None]
  - CATATONIA [None]
  - CONVULSION [None]
  - DISORIENTATION [None]
  - FOOD AVERSION [None]
  - INFECTION [None]
  - LABILE BLOOD PRESSURE [None]
  - MALAISE [None]
  - NEUTROPENIA [None]
  - OEDEMA PERIPHERAL [None]
  - PSYCHOTIC DISORDER [None]
  - SCHIZOPHRENIA [None]
  - TREATMENT NONCOMPLIANCE [None]
  - WHITE BLOOD CELL COUNT DECREASED [None]
